FAERS Safety Report 5545353-6 (Version None)
Quarter: 2007Q4

REPORT INFORMATION
  Report Type: 
  Country: None (occurrence: None)
  Receive Date: 20071211
  Receipt Date: 20071128
  Transmission Date: 20080405
  Serious: Yes (Hospitalization, Other)
  Sender: FDA-Public Use
  Company Number: JP-JNJFOC-20050506229

PATIENT
  Age: 64 Year
  Sex: Female

DRUGS (38)
  1. OFLOCET [Suspect]
     Dosage: STOPPED IN FEB-2004
     Dates: start: 20040121
  2. OFLOCET [Suspect]
     Indication: DRUG USE FOR UNKNOWN INDICATION
     Dosage: STOPPED IN 2004
     Dates: start: 20040121
  3. ARAVA [Suspect]
     Route: 048
  4. ARAVA [Suspect]
     Route: 048
  5. ARAVA [Suspect]
     Route: 048
  6. ARAVA [Suspect]
     Route: 048
  7. ARAVA [Suspect]
     Route: 048
  8. ARAVA [Suspect]
     Route: 048
  9. ARAVA [Suspect]
     Route: 048
  10. ARAVA [Suspect]
     Indication: BK VIRUS INFECTION
     Route: 048
  11. DIANTALVIC [Suspect]
     Route: 048
     Dates: start: 20040117
  12. DIANTALVIC [Suspect]
     Indication: DRUG USE FOR UNKNOWN INDICATION
     Route: 048
     Dates: start: 20040117
  13. PREDNISONE TAB [Concomitant]
     Route: 048
  14. CORDARONE [Concomitant]
     Route: 048
  15. AMLOR [Concomitant]
     Route: 048
  16. AMLOR [Concomitant]
     Route: 048
  17. AMLOR [Concomitant]
     Route: 048
  18. EUPRESSYL [Concomitant]
     Route: 048
  19. EUTHYRAL [Concomitant]
     Dosage: 0.5 U
     Route: 048
  20. TRIFLUCAN [Concomitant]
     Route: 048
  21. BACTRIM [Concomitant]
     Dosage: 0.5 U
     Route: 048
  22. ZELITREX [Concomitant]
     Dates: start: 20040117
  23. PROZAC [Concomitant]
     Route: 048
     Dates: start: 20040117, end: 20040201
  24. MOPRAL [Concomitant]
     Route: 048
  25. MOPRAL [Concomitant]
     Route: 048
  26. CALCIPARINE [Concomitant]
     Route: 058
  27. NEORECORMON [Concomitant]
  28. PERFALGAN [Concomitant]
  29. RYTHMOL [Concomitant]
     Route: 048
  30. PRIMPERAN INJ [Concomitant]
     Route: 048
  31. AUGMENTIN [Concomitant]
     Dates: start: 20040203
  32. DUPHALAC [Concomitant]
     Dates: start: 20040203
  33. IMOVANE [Concomitant]
     Dates: start: 20040203
  34. EFFEXOR [Concomitant]
     Dates: start: 20040212
  35. DAFALGAN [Concomitant]
     Route: 048
     Dates: start: 20040212
  36. PROGRAF [Concomitant]
     Route: 048
  37. PROGRAF [Concomitant]
     Route: 048
  38. PROGRAF [Concomitant]
     Route: 048

REACTIONS (8)
  - ANAEMIA [None]
  - CYTOMEGALOVIRUS INFECTION [None]
  - GAMMA-GLUTAMYLTRANSFERASE INCREASED [None]
  - HYPERTENSION [None]
  - PYELONEPHRITIS ACUTE [None]
  - RENAL FAILURE [None]
  - THROMBOCYTOPENIA [None]
  - URETERIC STENOSIS [None]
